FAERS Safety Report 4330443-6 (Version None)
Quarter: 2004Q1

REPORT INFORMATION
  Report Type: 
  Country: None (occurrence: None)
  Receive Date: 20040330
  Receipt Date: 20040317
  Transmission Date: 20041129
  Serious: Yes (Hospitalization)
  Sender: FDA-Public Use
  Company Number: GB-JNJFOC-20040303873

PATIENT
  Age: 59 Year
  Sex: Female

DRUGS (7)
  1. REMICADE [Suspect]
     Indication: RHEUMATOID ARTHRITIS
     Dosage: 160 MG, INTRAVENOUS
     Route: 042
     Dates: start: 20011205, end: 20020515
  2. PREDNISOLONE [Concomitant]
  3. PHENOBARBITAL TAB [Concomitant]
  4. FOLIC ACID [Concomitant]
  5. ALENDRONATE (ALENDRONATE SODIUM) [Concomitant]
  6. CALCICHEW (CALCIUM CARBONATE) [Concomitant]
  7. METHOTREXATE [Concomitant]

REACTIONS (3)
  - CHILLS [None]
  - MYALGIA [None]
  - PYREXIA [None]
